FAERS Safety Report 10551331 (Version 1)
Quarter: 2014Q4

REPORT INFORMATION
  Report Type: Spontaneous
  Country: US (occurrence: None)
  Receive Date: 20141028
  Receipt Date: 20141028
  Transmission Date: 20150529
  Serious: No
  Sender: FDA-Public Use
  Company Number: None

PATIENT
  Age: 72 Year
  Sex: Male
  Weight: 79.38 kg

DRUGS (11)
  1. DICLOFENAC SOD/MISOPRO [Suspect]
     Active Substance: DICLOFENAC SODIUM\MISOPROSTOL
     Indication: ANTIINFLAMMATORY THERAPY
     Dosage: 2 PILLS, DAILY, 2 A DAY, BY MOUTH
     Route: 048
  2. FOLIC ACID. [Concomitant]
     Active Substance: FOLIC ACID
  3. LEVOTHROXINE SODIUM [Concomitant]
     Active Substance: LEVOTHYROXINE SODIUM
  4. ZOLPRIDERM [Concomitant]
  5. CARVEDILOL. [Concomitant]
     Active Substance: CARVEDILOL
  6. ASIPRIN [Concomitant]
  7. LIPITOR [Concomitant]
     Active Substance: ATORVASTATIN CALCIUM
  8. TRLONIX [Concomitant]
  9. TRIFENZOR [Concomitant]
  10. PLAVIX [Concomitant]
     Active Substance: CLOPIDOGREL BISULFATE
  11. AVODART [Concomitant]
     Active Substance: DUTASTERIDE

REACTIONS (7)
  - Pruritus [None]
  - Abdominal pain upper [None]
  - Asthenia [None]
  - Fatigue [None]
  - Nausea [None]
  - Pyrexia [None]
  - Haematochezia [None]

NARRATIVE: CASE EVENT DATE: 201409
